FAERS Safety Report 15634487 (Version 1)
Quarter: 2018Q4

REPORT INFORMATION
  Report Type: Spontaneous
  Country: CH (occurrence: CH)
  Receive Date: 20181119
  Receipt Date: 20181119
  Transmission Date: 20190205
  Serious: Yes (Other)
  Sender: FDA-Public Use
  Company Number: PHHY2018CH149597

PATIENT
  Age: 57 Year
  Sex: Female

DRUGS (3)
  1. COSENTYX [Suspect]
     Active Substance: SECUKINUMAB
     Indication: PSORIASIS
     Dosage: UNKNOWN DOSE
     Route: 058
     Dates: start: 201601, end: 201607
  2. COSENTYX [Suspect]
     Active Substance: SECUKINUMAB
     Dosage: UNK
     Route: 058
  3. REMICADE [Suspect]
     Active Substance: INFLIXIMAB
     Indication: PSORIASIS
     Dosage: 300 MG, (IV EVERY 8 WEEKS)
     Route: 041
     Dates: start: 20160930, end: 20170310

REACTIONS (4)
  - Colitis ulcerative [Not Recovered/Not Resolved]
  - Histone antibody positive [Unknown]
  - DNA antibody positive [Unknown]
  - Interstitial lung disease [Recovering/Resolving]

NARRATIVE: CASE EVENT DATE: 201610
